FAERS Safety Report 7974521-9 (Version None)
Quarter: 2011Q4

REPORT INFORMATION
  Report Type: 
  Country: None (occurrence: None)
  Receive Date: 20111213
  Receipt Date: 20111130
  Transmission Date: 20120403
  Serious: No
  Sender: FDA-Public Use
  Company Number: US-BAYER-2011-115539

PATIENT
  Age: 22 Year
  Sex: Female

DRUGS (1)
  1. BEYAZ [Suspect]
     Indication: ACNE
     Dosage: UNK UNK, QD
     Route: 048

REACTIONS (1)
  - BREAST ENLARGEMENT [None]
